FAERS Safety Report 12254703 (Version 5)
Quarter: 2017Q3

REPORT INFORMATION
  Report Type: Report from Study
  Country: US (occurrence: US)
  Receive Date: 20160411
  Receipt Date: 20170821
  Transmission Date: 20171127
  Serious: Yes (Hospitalization)
  Sender: FDA-Public Use
  Company Number: US-ACTELION-A-US2016-133256

PATIENT
  Age: 36 Year
  Sex: Female

DRUGS (4)
  1. RIOCIGUAT [Concomitant]
     Active Substance: RIOCIGUAT
  2. VELETRI [Suspect]
     Active Substance: EPOPROSTENOL
     Indication: PULMONARY ARTERIAL HYPERTENSION
     Dosage: 12 NG/KG, PER MIN
     Route: 042
     Dates: start: 20150112
  3. XARELTO [Concomitant]
     Active Substance: RIVAROXABAN
  4. OPSUMIT [Suspect]
     Active Substance: MACITENTAN
     Indication: PULMONARY ARTERIAL HYPERTENSION
     Dosage: 10 MG, QD
     Route: 048
     Dates: start: 20160314

REACTIONS (11)
  - Transfusion [Unknown]
  - Diarrhoea [Recovering/Resolving]
  - Oxygen saturation decreased [Unknown]
  - Headache [Unknown]
  - Abdominal rigidity [Recovering/Resolving]
  - Dizziness [Unknown]
  - Chromaturia [Recovering/Resolving]
  - Flushing [Unknown]
  - Echocardiogram abnormal [Unknown]
  - Asthenia [Unknown]
  - Cyanosis [Recovering/Resolving]
